FAERS Safety Report 5332507-7 (Version None)
Quarter: 2007Q2

REPORT INFORMATION
  Report Type: 
  Country: None (occurrence: None)
  Receive Date: 20070523
  Receipt Date: 20070509
  Transmission Date: 20071010
  Serious: Yes (Life-Threatening, Hospitalization, Other)
  Sender: FDA-Public Use
  Company Number: PL-ASTRAZENECA-2007SE02320

PATIENT
  Age: 64 Year
  Sex: Female

DRUGS (4)
  1. FASLODEX [Suspect]
     Indication: BREAST CANCER
     Route: 030
     Dates: start: 20070227, end: 20070424
  2. ENARENAL [Concomitant]
     Indication: HYPERTENSION
     Route: 048
     Dates: start: 20061101, end: 20070326
  3. ENARENAL [Concomitant]
     Route: 048
     Dates: start: 20070327
  4. BISOCARD [Concomitant]
     Indication: HYPERTENSION
     Route: 048
     Dates: start: 20061101

REACTIONS (1)
  - HYPERTENSION [None]
